FAERS Safety Report 10145236 (Version 1)
Quarter: 2014Q2

REPORT INFORMATION
  Report Type: Spontaneous
  Country: US (occurrence: US)
  Receive Date: 20140501
  Receipt Date: 20140501
  Transmission Date: 20141212
  Serious: No
  Sender: FDA-Public Use
  Company Number: US-BIOGENIDEC-2014BI037126

PATIENT
  Age: 40 Year
  Sex: Male

DRUGS (2)
  1. TECFIDERA [Suspect]
     Indication: RELAPSING-REMITTING MULTIPLE SCLEROSIS
     Route: 048
     Dates: start: 20140411
  2. TECFIDERA [Suspect]
     Indication: RELAPSING-REMITTING MULTIPLE SCLEROSIS
     Route: 048

REACTIONS (11)
  - Oropharyngeal discomfort [Not Recovered/Not Resolved]
  - Dry mouth [Recovered/Resolved]
  - Ear discomfort [Not Recovered/Not Resolved]
  - Nasal discomfort [Not Recovered/Not Resolved]
  - Glossodynia [Recovered/Resolved]
  - Paraesthesia oral [Recovered/Resolved]
  - Irritable bowel syndrome [Unknown]
  - Drug dose omission [Recovered/Resolved]
  - Feeling hot [Not Recovered/Not Resolved]
  - Rash generalised [Recovered/Resolved]
  - Flushing [Recovered/Resolved]
